FAERS Safety Report 13204626 (Version 1)
Quarter: 2017Q1

REPORT INFORMATION
  Report Type: Spontaneous
  Country: US (occurrence: US)
  Receive Date: 20170209
  Receipt Date: 20170209
  Transmission Date: 20170428
  Serious: No
  Sender: FDA-Public Use
  Company Number: US-GLAXOSMITHKLINE-US2017GSK018279

PATIENT
  Sex: Female

DRUGS (2)
  1. WELLBUTRIN [Suspect]
     Active Substance: BUPROPION HYDROCHLORIDE
     Indication: PRODUCT USED FOR UNKNOWN INDICATION
     Dosage: UNK, U
  2. HUMIRA [Suspect]
     Active Substance: ADALIMUMAB
     Indication: RHEUMATOID ARTHRITIS
     Dosage: 40 MG, Z
     Route: 058
     Dates: start: 201607

REACTIONS (6)
  - Depression [Unknown]
  - Joint stiffness [Unknown]
  - Arthralgia [Unknown]
  - Hypokinesia [Unknown]
  - Activities of daily living impaired [Unknown]
  - Anxiety [Unknown]

NARRATIVE: CASE EVENT DATE: 2016
